FAERS Safety Report 8621976-2 (Version None)
Quarter: 2012Q3

REPORT INFORMATION
  Report Type: 
  Country: None (occurrence: None)
  Receive Date: 20120823
  Receipt Date: 20120823
  Transmission Date: 20120928
  Serious: Yes (Disabling, Other)
  Sender: FDA-Public Use
  Company Number: None

PATIENT
  Age: 65 Year
  Sex: Female
  Weight: 86.1834 kg

DRUGS (2)
  1. ADVAIR DISKUS 150/50MG GLAXOSMITHKLIN [Suspect]
     Indication: ASTHMA
     Dosage: ONE BLISTER INHALED TWICE DAILY BUCCAL
     Route: 002
     Dates: start: 20120821, end: 20120821
  2. ADVAIR DISKUS 150/50MG GLAXOSMITHKLIN [Suspect]
     Indication: ASTHMA
     Dosage: ONE BLISTER INHALED TWICE DAILY BUCCAL
     Route: 002
     Dates: start: 20040801, end: 20040801

REACTIONS (2)
  - VOCAL CORD DISORDER [None]
  - DYSPHONIA [None]
